FAERS Safety Report 15264251 (Version 1)
Quarter: 2018Q3

REPORT INFORMATION
  Report Type: Spontaneous
  Country: DE (occurrence: DE)
  Receive Date: 20180810
  Receipt Date: 20180810
  Transmission Date: 20181010
  Serious: Yes (Hospitalization)
  Sender: FDA-Public Use
  Company Number: PHHY2018DE067611

PATIENT
  Age: 84 Year
  Sex: Male

DRUGS (4)
  1. ASPIRIN. [Suspect]
     Active Substance: ASPIRIN
     Indication: PRODUCT USED FOR UNKNOWN INDICATION
     Dosage: 80 MG, UNK
     Route: 048
  2. TORASEMIDE [Interacting]
     Active Substance: TORSEMIDE
     Indication: OEDEMA PERIPHERAL
     Dosage: RECOMMENDED UP TO 4 TABLETS PER DAY
     Route: 065
  3. TORASEMIDE [Interacting]
     Active Substance: TORSEMIDE
     Indication: PULMONARY OEDEMA
  4. DIGIMERCK [Concomitant]
     Active Substance: DIGITOXIN
     Indication: PRODUCT USED FOR UNKNOWN INDICATION
     Dosage: DIGIMERK 0,7MG
     Route: 065

REACTIONS (4)
  - Umbilical hernia [Recovered/Resolved]
  - Constipation [Recovered/Resolved]
  - Drug ineffective [Unknown]
  - Flatulence [Recovered/Resolved]
